FAERS Safety Report 8614280-X (Version None)
Quarter: 2012Q3

REPORT INFORMATION
  Report Type: 
  Country: None (occurrence: None)
  Receive Date: 20120823
  Receipt Date: 20120813
  Transmission Date: 20120928
  Serious: Yes (Hospitalization)
  Sender: FDA-Public Use
  Company Number: US-009507513-1208USA006411

PATIENT

DRUGS (3)
  1. PEPCID [Suspect]
     Indication: GASTRIC DISORDER
     Dosage: 30 MG, PRN
     Route: 048
     Dates: start: 20110101
  2. PEPCID [Suspect]
     Indication: ABDOMINAL PAIN UPPER
     Dosage: 30 MG, PRN
     Route: 048
     Dates: start: 20110101, end: 20120101
  3. NIFEDIPINE [Suspect]
     Indication: HYPERTENSION
     Dosage: UNK, PRN
     Route: 048
     Dates: end: 20110101

REACTIONS (1)
  - MYOCARDIAL INFARCTION [None]
